FAERS Safety Report 20109166 (Version 1)
Quarter: 2021Q4

REPORT INFORMATION
  Report Type: Spontaneous
  Country: US (occurrence: US)
  Receive Date: 20211124
  Receipt Date: 20211124
  Transmission Date: 20220303
  Serious: Yes (Other)
  Sender: FDA-Public Use
  Company Number: US-JNJFOC-20211140144

PATIENT
  Age: 34 Year
  Sex: Female

DRUGS (1)
  1. SPRAVATO [Suspect]
     Active Substance: ESKETAMINE
     Indication: Depression
     Dosage: 56 MG TWICE WEEKLY FOR A MONTH THEN 56 MG ONCE A WEEK FOR TWO MONTHS. (6 DOSES)
     Dates: start: 20210902, end: 20211028

REACTIONS (10)
  - Suicidal ideation [Unknown]
  - Depression [Not Recovered/Not Resolved]
  - Abnormal behaviour [Not Recovered/Not Resolved]
  - Restlessness [Unknown]
  - Morbid thoughts [Not Recovered/Not Resolved]
  - Agitation [Not Recovered/Not Resolved]
  - Pruritus [Not Recovered/Not Resolved]
  - Formication [Unknown]
  - Emotional disorder [Unknown]
  - Personality change [Unknown]

NARRATIVE: CASE EVENT DATE: 20211101
